FAERS Safety Report 6221952-3 (Version None)
Quarter: 2009Q2

REPORT INFORMATION
  Report Type: 
  Country: None (occurrence: None)
  Receive Date: 20090608
  Receipt Date: 20090608
  Transmission Date: 20091009
  Serious: Yes (Hospitalization)
  Sender: FDA-Public Use
  Company Number: None

PATIENT
  Sex: Female
  Weight: 55.4 kg

DRUGS (1)
  1. TEMOZOLOMIDE [Suspect]
     Indication: ACUTE MYELOID LEUKAEMIA
     Dosage: 200MG/M2 QG PO
     Route: 048
     Dates: start: 20090529, end: 20090604

REACTIONS (2)
  - BLOOD PRESSURE SYSTOLIC INCREASED [None]
  - ECCHYMOSIS [None]
